FAERS Safety Report 7939769-8 (Version None)
Quarter: 2011Q4

REPORT INFORMATION
  Report Type: 
  Country: None (occurrence: None)
  Receive Date: 20111125
  Receipt Date: 20111119
  Transmission Date: 20120403
  Serious: No
  Sender: FDA-Public Use
  Company Number: PHHY2011CA72923

PATIENT
  Sex: Male

DRUGS (1)
  1. GILENYA [Suspect]
     Indication: RELAPSING-REMITTING MULTIPLE SCLEROSIS
     Dosage: 0.5 MG, QD
     Route: 048
     Dates: start: 20110614

REACTIONS (7)
  - FALL [None]
  - GAIT DISTURBANCE [None]
  - INITIAL INSOMNIA [None]
  - VISUAL ACUITY REDUCED [None]
  - PAIN IN EXTREMITY [None]
  - FATIGUE [None]
  - HYPOAESTHESIA [None]
